FAERS Safety Report 20921250 (Version 1)
Quarter: 2022Q2

REPORT INFORMATION
  Report Type: Spontaneous
  Country: DK (occurrence: DK)
  Receive Date: 20220606
  Receipt Date: 20220606
  Transmission Date: 20220721
  Serious: Yes (Other)
  Sender: FDA-Public Use
  Company Number: DK-NAPPMUNDI-GBR-2022-0098245

PATIENT
  Age: 28 Year
  Sex: Female

DRUGS (3)
  1. OXYCODONE HYDROCHLORIDE [Suspect]
     Active Substance: OXYCODONE HYDROCHLORIDE
     Indication: Procedural pain
     Dosage: UNK
     Route: 065
  2. OXYCODONE HYDROCHLORIDE [Suspect]
     Active Substance: OXYCODONE HYDROCHLORIDE
     Indication: Pain
     Dosage: UNK, TID
     Route: 065
  3. MORPHINE SULFATE [Suspect]
     Active Substance: MORPHINE SULFATE
     Indication: Procedural pain
     Dosage: UNK
     Route: 065

REACTIONS (14)
  - Drug abuse [Unknown]
  - Drug dependence [Unknown]
  - Abortion induced [Unknown]
  - Overdose [Unknown]
  - Maternal exposure during pregnancy [Unknown]
  - Drug withdrawal syndrome [Unknown]
  - Euphoric mood [Unknown]
  - Cough [Unknown]
  - Arthralgia [Unknown]
  - Rhinorrhoea [Unknown]
  - Hyperhidrosis [Unknown]
  - Muscle spasms [Unknown]
  - Diarrhoea [Unknown]
  - Drug intolerance [Unknown]
